FAERS Safety Report 21333042 (Version 4)
Quarter: 2022Q4

REPORT INFORMATION
  Report Type: Spontaneous
  Country: US (occurrence: US)
  Receive Date: 20220914
  Receipt Date: 20221128
  Transmission Date: 20230112
  Serious: Yes (Other)
  Sender: FDA-Public Use
  Company Number: US-GSKCCFUS-Case-01489592_AE-84936

PATIENT

DRUGS (4)
  1. NUCALA [Suspect]
     Active Substance: MEPOLIZUMAB
     Indication: Rhinitis
     Dosage: 3 DF, Z EVERY 4 WEEKS
     Dates: start: 2022
  2. NUCALA [Suspect]
     Active Substance: MEPOLIZUMAB
     Indication: Polyp
  3. ADVAIR HFA [Suspect]
     Active Substance: FLUTICASONE PROPIONATE\SALMETEROL XINAFOATE
     Indication: Product used for unknown indication
     Dosage: UNK
  4. SODIUM CHLORIDE [Suspect]
     Active Substance: SODIUM CHLORIDE
     Indication: Product used for unknown indication
     Dosage: UNK

REACTIONS (15)
  - Myasthenia gravis [Unknown]
  - Nasal congestion [Unknown]
  - Nasal polyps [Unknown]
  - Paranasal sinus inflammation [Unknown]
  - Pain [Unknown]
  - Back pain [Unknown]
  - Fatigue [Not Recovered/Not Resolved]
  - Candida infection [Unknown]
  - Dyspnoea [Unknown]
  - Insomnia [Unknown]
  - Stress [Unknown]
  - Rhinorrhoea [Unknown]
  - Condition aggravated [Unknown]
  - Drug ineffective [Unknown]
  - Incorrect dose administered [Unknown]

NARRATIVE: CASE EVENT DATE: 20220101
